FAERS Safety Report 5099921-9 (Version None)
Quarter: 2006Q3

REPORT INFORMATION
  Report Type: 
  Country: None (occurrence: None)
  Receive Date: 20060906
  Receipt Date: 20060906
  Transmission Date: 20061208
  Serious: Yes (Hospitalization)
  Sender: FDA-Public Use
  Company Number: None

PATIENT
  Age: 78 Year
  Sex: Male
  Weight: 55.5 kg

DRUGS (1)
  1. HYDROCHLOROTHIAZIDE 25MG TAB [Suspect]
     Dosage: 12.5MG QD PO
     Route: 048

REACTIONS (14)
  - ACUTE PRERENAL FAILURE [None]
  - BALANCE DISORDER [None]
  - DEHYDRATION [None]
  - DYSURIA [None]
  - FALL [None]
  - HYPERCALCAEMIA [None]
  - HYPERPARATHYROIDISM [None]
  - HYPERTROPHIC OSTEOARTHROPATHY [None]
  - HYPOKALAEMIA [None]
  - HYPOPHOSPHATAEMIA [None]
  - PARATHYROID TUMOUR BENIGN [None]
  - PARATHYROID TUMOUR MALIGNANT [None]
  - URINARY HESITATION [None]
  - URINARY TRACT INFECTION STAPHYLOCOCCAL [None]
